FAERS Safety Report 17171741 (Version 1)
Quarter: 2019Q4

REPORT INFORMATION
  Report Type: Spontaneous
  Country: TW (occurrence: TW)
  Receive Date: 20191218
  Receipt Date: 20191218
  Transmission Date: 20200122
  Serious: Yes (Hospitalization)
  Sender: FDA-Public Use
  Company Number: TW-SA-2019SA351564

PATIENT
  Age: 71 Year
  Sex: Male

DRUGS (15)
  1. RIFAMPIN. [Concomitant]
     Active Substance: RIFAMPIN
  2. ETHAMBUTOL [Concomitant]
     Active Substance: ETHAMBUTOL HYDROCHLORIDE
  3. MAGNESIUM OXIDE. [Concomitant]
     Active Substance: MAGNESIUM OXIDE
  4. BISOPROLOL [Concomitant]
     Active Substance: BISOPROLOL
  5. ALFUZOSIN [Concomitant]
     Active Substance: ALFUZOSIN
  6. ROSUVASTATIN. [Concomitant]
     Active Substance: ROSUVASTATIN
  7. TAMSULOSIN HYDROCHLORIDE. [Suspect]
     Active Substance: TAMSULOSIN HYDROCHLORIDE
     Indication: PRODUCT USED FOR UNKNOWN INDICATION
     Dosage: UNK, UNK
     Route: 065
  8. PYRAZINAMIDE. [Concomitant]
     Active Substance: PYRAZINAMIDE
  9. ISONIAZID. [Concomitant]
     Active Substance: ISONIAZID
  10. LOSARTAN. [Concomitant]
     Active Substance: LOSARTAN
  11. AKURIT-3 [Concomitant]
  12. RIVAROXABAN [Concomitant]
     Active Substance: RIVAROXABAN
  13. PROPAFENONE. [Concomitant]
     Active Substance: PROPAFENONE
  14. BROMAZEPAM [Concomitant]
     Active Substance: BROMAZEPAM
  15. SILODOSIN. [Concomitant]
     Active Substance: SILODOSIN

REACTIONS (1)
  - Chronic sinusitis [Unknown]
